FAERS Safety Report 13163892 (Version 1)
Quarter: 2017Q1

REPORT INFORMATION
  Report Type: Spontaneous
  Country: US (occurrence: US)
  Receive Date: 20170130
  Receipt Date: 20170130
  Transmission Date: 20170428
  Serious: Yes (Other)
  Sender: FDA-Public Use
  Company Number: US-LPDUSPRD-20170045

PATIENT
  Age: 61 Year
  Sex: Male

DRUGS (10)
  1. PHENYTOIN. [Concomitant]
     Active Substance: PHENYTOIN
  2. THIOPETA [Concomitant]
     Dosage: 250MG /M2
     Route: 042
  3. FAMCICLOVIR. [Concomitant]
     Active Substance: FAMCICLOVIR
  4. ACYCLOVIR. [Concomitant]
     Active Substance: ACYCLOVIR
  5. BUSULFAN INJECTION (0517-0920-01) [Suspect]
     Active Substance: BUSULFAN
     Dosage: 0.67 OR 0.8 MG/KG
     Route: 042
  6. CYCLOPHOSPHAMIDE. [Concomitant]
     Active Substance: CYCLOPHOSPHAMIDE
     Dosage: 60MG/KG
     Route: 042
  7. LEVETIRACETAM. [Concomitant]
     Active Substance: LEVETIRACETAM
  8. MESNA. [Concomitant]
     Active Substance: MESNA
     Dosage: 15MG/KG
  9. FILGRASTIM [Concomitant]
     Active Substance: FILGRASTIM
     Dosage: 5-10 UG/KG
  10. URSODIOL. [Concomitant]
     Active Substance: URSODIOL
     Dosage: 300 MG TWICE DAILY

REACTIONS (1)
  - Pulmonary toxicity [Unknown]
